FAERS Safety Report 9973647 (Version 1)
Quarter: 2014Q1

REPORT INFORMATION
  Report Type: Report from Study
  Country: JP (occurrence: JP)
  Receive Date: 20140306
  Receipt Date: 20140306
  Transmission Date: 20141002
  Serious: Yes (Hospitalization, Other)
  Sender: FDA-Public Use
  Company Number: JP-TAKEDA-2014TUS001586

PATIENT
  Sex: 0

DRUGS (16)
  1. FEBURIC [Suspect]
     Indication: HYPERURICAEMIA
     Dosage: 10 MG, QD
     Route: 048
     Dates: start: 20121205, end: 20131126
  2. FEBURIC [Suspect]
     Dosage: 20 MG, QD
     Route: 048
     Dates: start: 20131127
  3. PREMINENT [Concomitant]
     Dosage: UNK
     Route: 048
     Dates: start: 20121205, end: 20121209
  4. NU-LOTAN [Concomitant]
     Dosage: 50 MG, QD
     Dates: start: 20121205, end: 20130724
  5. NU-LOTAN [Concomitant]
     Dosage: 50 MG, QD
     Route: 048
     Dates: start: 20130919
  6. NESINA [Concomitant]
     Dosage: 6.25 MG, QD
     Route: 048
     Dates: start: 20121205
  7. ARTIST [Concomitant]
     Dosage: 10 MG, QD
     Route: 048
     Dates: start: 201210, end: 20130626
  8. PLETAAL [Concomitant]
     Dosage: 200 MG, QD
     Route: 048
     Dates: start: 20121022, end: 20121210
  9. ATELEC [Concomitant]
     Dosage: 20 MG, QD
     Route: 048
     Dates: start: 20121207, end: 20121212
  10. ATELEC [Concomitant]
     Dosage: 20 MG, QD
     Route: 048
     Dates: start: 20130328, end: 20130626
  11. ADALAT [Concomitant]
     Dosage: 40 MG, QD
     Route: 048
     Dates: start: 20121213, end: 20130327
  12. BAYASPIRIN [Concomitant]
     Dosage: 100 MG, QD
     Route: 048
     Dates: start: 20130204
  13. MAINTATE [Concomitant]
     Dosage: 1.250 MG, QD
     Route: 048
     Dates: start: 20130627
  14. NORVASC [Concomitant]
     Dosage: 7.5 MG, QD
     Route: 048
     Dates: start: 20130627, end: 20130918
  15. MICARDIS [Concomitant]
     Dosage: 120 MG, QD
     Route: 048
     Dates: start: 20130724, end: 20130918
  16. CALBLOCK [Concomitant]
     Dosage: 8 MG, QD
     Route: 048
     Dates: start: 20130919

REACTIONS (1)
  - Cerebral infarction [Recovering/Resolving]
